FAERS Safety Report 22008282 (Version 2)
Quarter: 2023Q2

REPORT INFORMATION
  Report Type: Spontaneous
  Country: US (occurrence: US)
  Receive Date: 20230219
  Receipt Date: 20230413
  Transmission Date: 20230721
  Serious: Yes (Hospitalization, Other)
  Sender: FDA-Public Use
  Company Number: US-009507513-2302USA005235

PATIENT
  Age: 52 Year
  Sex: Female

DRUGS (1)
  1. KEYTRUDA [Suspect]
     Active Substance: PEMBROLIZUMAB
     Indication: Triple negative breast cancer
     Dosage: 3 CYCLE
     Dates: end: 20230116

REACTIONS (8)
  - Clostridium difficile colitis [Unknown]
  - Neutropenia [Unknown]
  - Cytokine release syndrome [Unknown]
  - Pneumonia [Unknown]
  - Urinary tract infection [Unknown]
  - Interleukin level increased [Unknown]
  - Inflammatory marker increased [Unknown]
  - Incorrect route of product administration [Unknown]
